FAERS Safety Report 6666444-2 (Version None)
Quarter: 2010Q2

REPORT INFORMATION
  Report Type: 
  Country: None (occurrence: None)
  Receive Date: 20100402
  Receipt Date: 20100324
  Transmission Date: 20101027
  Serious: Yes (Hospitalization)
  Sender: FDA-Public Use
  Company Number: BR-ABBOTT-10P-020-0634165-00

PATIENT
  Sex: Female
  Weight: 66 kg

DRUGS (5)
  1. HUMIRA [Suspect]
     Indication: CROHN'S DISEASE
     Dosage: INDUCTION DOSE: 80MG/40MG/14DAYS
     Route: 058
     Dates: start: 20090501, end: 20100319
  2. HUMIRA [Suspect]
  3. MESALAZINE [Concomitant]
     Indication: CROHN'S DISEASE
     Route: 048
  4. OMEPRAZOLE [Concomitant]
     Indication: GASTRIC DISORDER
     Route: 048
  5. DEFLAZACORT [Concomitant]
     Indication: CROHN'S DISEASE
     Route: 048

REACTIONS (7)
  - ANAL FISTULA [None]
  - ANAL HAEMORRHAGE [None]
  - DECREASED IMMUNE RESPONSIVENESS [None]
  - ENTEROVESICAL FISTULA [None]
  - HYPERTENSION [None]
  - PHARYNGITIS [None]
  - PYREXIA [None]
